FAERS Safety Report 5780545-2 (Version None)
Quarter: 2008Q2

REPORT INFORMATION
  Report Type: 
  Country: None (occurrence: None)
  Receive Date: 20080620
  Receipt Date: 20080611
  Transmission Date: 20081010
  Serious: Yes (Other)
  Sender: FDA-Public Use
  Company Number: PHHY2008IN10419

PATIENT
  Age: 40 Year
  Sex: Male

DRUGS (1)
  1. SIMULECT [Suspect]
     Indication: RENAL TRANSPLANT
     Dosage: 1 VIAL

REACTIONS (4)
  - BRONCHOSPASM [None]
  - EYE SWELLING [None]
  - FEELING HOT [None]
  - RASH [None]
